FAERS Safety Report 23769574 (Version 1)
Quarter: 2024Q2

REPORT INFORMATION
  Report Type: Spontaneous
  Country: CA (occurrence: CA)
  Receive Date: 20240422
  Receipt Date: 20240422
  Transmission Date: 20240716
  Serious: Yes (Hospitalization, Other)
  Sender: FDA-Public Use
  Company Number: CA-BAXTER-2024BAX016999

PATIENT
  Age: 34 Year
  Sex: Male
  Weight: 79 kg

DRUGS (2)
  1. DOXORUBICIN [Suspect]
     Active Substance: DOXORUBICIN
     Indication: Non-Hodgkin^s lymphoma
     Dosage: 97 MILLIGRAM, 1 EVERY 21 DAYS, DOSAGE FORM: SOLUTION INTRAVENOUS
     Route: 040
  2. CYCLOPHOSPHAMIDE [Suspect]
     Active Substance: CYCLOPHOSPHAMIDE
     Indication: Non-Hodgkin^s lymphoma
     Dosage: 1469 MILLIGRAM, 1 EVERY 21 DAYS, DOSAGE FORM: POWDER FOR SOLUTION INTRAVENOUS
     Route: 041

REACTIONS (2)
  - Febrile neutropenia [Recovering/Resolving]
  - Malaise [Recovering/Resolving]
